FAERS Safety Report 5354218-4 (Version None)
Quarter: 2007Q2

REPORT INFORMATION
  Report Type: 
  Country: None (occurrence: None)
  Receive Date: 20070612
  Receipt Date: 20070530
  Transmission Date: 20071010
  Serious: Yes (Hospitalization)
  Sender: FDA-Public Use
  Company Number: US-ELI_LILLY_AND_COMPANY-US200706000143

PATIENT
  Age: 69 Year
  Sex: Female
  Weight: 104.31 kg

DRUGS (9)
  1. BYETTA [Suspect]
     Indication: DIABETES MELLITUS NON-INSULIN-DEPENDENT
     Dosage: 10 UG, UNK
     Route: 058
     Dates: start: 20061201, end: 20070215
  2. BYETTA [Suspect]
     Dosage: 5 UG, UNK
     Route: 058
     Dates: start: 20061106, end: 20061201
  3. BYETTA [Suspect]
     Route: 058
     Dates: start: 20070101, end: 20070525
  4. LIPITOR [Concomitant]
     Dates: end: 20070201
  5. GLIPIZIDE [Concomitant]
     Dosage: 5 MG, DAILY (1/D)
     Route: 048
  6. ZETIA [Concomitant]
     Dates: end: 20070525
  7. NEXIUM [Concomitant]
     Dosage: 40 MG, DAILY (1/D)
     Route: 048
  8. LISINOPRIL [Concomitant]
     Dosage: 15 MG, DAILY (1/D)
     Route: 048
  9. ASPIRIN [Concomitant]
     Dosage: 81 MG, DAILY (1/D)
     Route: 048

REACTIONS (8)
  - DEHYDRATION [None]
  - DRUG HYPERSENSITIVITY [None]
  - HEADACHE [None]
  - HYPERGLYCAEMIA [None]
  - LEUKOCYTOSIS [None]
  - LIVER FUNCTION TEST ABNORMAL [None]
  - PYREXIA [None]
  - TRANSAMINASES INCREASED [None]
